FAERS Safety Report 10062361 (Version 2)
Quarter: 2014Q2

REPORT INFORMATION
  Report Type: Spontaneous
  Country: US (occurrence: US)
  Receive Date: 20140407
  Receipt Date: 20140515
  Transmission Date: 20141212
  Serious: No
  Sender: FDA-Public Use
  Company Number: US-PFIZER INC-2014094202

PATIENT
  Age: 80 Year
  Sex: Male
  Weight: 86.17 kg

DRUGS (1)
  1. GLIPIZIDE [Suspect]
     Indication: DIABETES MELLITUS
     Dosage: 2.5 MG, DAILY
     Dates: start: 2014, end: 201403

REACTIONS (1)
  - Blood glucose abnormal [Unknown]
